FAERS Safety Report 6842504-8 (Version None)
Quarter: 2010Q3

REPORT INFORMATION
  Report Type: 
  Country: None (occurrence: None)
  Receive Date: 20100714
  Receipt Date: 20071116
  Transmission Date: 20110219
  Serious: No
  Sender: FDA-Public Use
  Company Number: US-PFIZER INC-2007063974

PATIENT
  Sex: Male
  Weight: 104.33 kg

DRUGS (7)
  1. CHANTIX [Suspect]
     Indication: SMOKING CESSATION THERAPY
     Route: 048
     Dates: start: 20070701, end: 20070725
  2. BACTRIM [Concomitant]
  3. ZIDOVUDINE [Concomitant]
  4. TRUVADA [Concomitant]
  5. MEPHYTON [Concomitant]
  6. KALETRA [Concomitant]
  7. LISINOPRIL [Concomitant]

REACTIONS (6)
  - ABDOMINAL PAIN [None]
  - HEADACHE [None]
  - INCORRECT DOSE ADMINISTERED [None]
  - INSOMNIA [None]
  - NAUSEA [None]
  - TREMOR [None]
